APPROVED DRUG PRODUCT: VALTOCO
Active Ingredient: DIAZEPAM
Strength: 7.5MG/SPRAY
Dosage Form/Route: SPRAY;NASAL
Application: N211635 | Product #002
Applicant: NEURELIS INC
Approved: Jan 10, 2020 | RLD: Yes | RS: No | Type: RX

PATENTS:
Patent 12324852 | Expires: Oct 16, 2032
Patent 12337061 | Expires: Jun 13, 2032
Patent 12521400 | Expires: Mar 27, 2029
Patent 11793786 | Expires: Mar 27, 2029
Patent 12268664 | Expires: Mar 27, 2029
Patent 11241414 | Expires: Mar 27, 2029
Patent 8895546 | Expires: Mar 27, 2029

EXCLUSIVITY:
Code: NPP | Date: Apr 15, 2028
Code: ODE-279 | Date: Jan 10, 2027